FAERS Safety Report 24056101 (Version 1)
Quarter: 2024Q3

REPORT INFORMATION
  Report Type: Spontaneous
  Country: US (occurrence: US)
  Receive Date: 20240705
  Receipt Date: 20240705
  Transmission Date: 20241017
  Serious: Yes (Hospitalization, Other)
  Sender: BAUSCH AND LOMB
  Company Number: US-BAUSCH-BL-2024-010082

PATIENT
  Age: 0 Day
  Sex: Female

DRUGS (3)
  1. VENLAFAXINE [Suspect]
     Active Substance: VENLAFAXINE HYDROCHLORIDE
     Indication: Bipolar disorder
     Route: 064
  2. ENOXAPARIN [Suspect]
     Active Substance: ENOXAPARIN
     Indication: Pulmonary embolism
     Route: 064
  3. OXYGEN [Concomitant]
     Active Substance: OXYGEN
     Indication: Cyanosis

REACTIONS (6)
  - Mesenteric vascular occlusion [Not Recovered/Not Resolved]
  - Congenital gastrointestinal vessel anomaly [Not Recovered/Not Resolved]
  - Cystic fibrosis [Not Recovered/Not Resolved]
  - Abdominal hernia obstructive [Recovered/Resolved]
  - Intestinal ischaemia [Not Recovered/Not Resolved]
  - Maternal exposure during pregnancy [Unknown]
